FAERS Safety Report 8770125 (Version 1)
Quarter: 2012Q4

REPORT INFORMATION
  Report Type: 
  Country: US (occurrence: US)
  Receive Date: 20120905
  Receipt Date: 20120905
  Transmission Date: 20130627
  Serious: No
  Sender: FDA-Public Use
  Company Number: US-009507513-1208USA010742

PATIENT

DRUGS (1)
  1. MAXALT [Suspect]
     Indication: HEADACHE
     Dosage: 10 mg, prn
     Route: 060
     Dates: start: 20120823

REACTIONS (2)
  - Dysgeusia [Unknown]
  - Hypersensitivity [Unknown]
